FAERS Safety Report 6846330-5 (Version None)
Quarter: 2010Q3

REPORT INFORMATION
  Report Type: 
  Country: None (occurrence: None)
  Receive Date: 20100715
  Receipt Date: 20070914
  Transmission Date: 20110219
  Serious: No
  Sender: FDA-Public Use
  Company Number: US-PFIZER INC-2007077721

PATIENT
  Sex: Female
  Weight: 67.3 kg

DRUGS (7)
  1. CHANTIX [Suspect]
     Indication: SMOKING CESSATION THERAPY
     Dates: start: 20070813
  2. LISINOPRIL [Concomitant]
  3. THYROID TAB [Concomitant]
  4. PREVACID [Concomitant]
     Indication: GASTROOESOPHAGEAL REFLUX DISEASE
  5. TIOTROPIUM BROMIDE [Concomitant]
  6. ADVAIR DISKUS 100/50 [Concomitant]
     Dosage: 500/50
  7. SALBUTAMOL [Concomitant]

REACTIONS (2)
  - NAUSEA [None]
  - VOMITING [None]
